FAERS Safety Report 17978588 (Version 4)
Quarter: 2020Q3

REPORT INFORMATION
  Report Type: Report from Study
  Country: GB (occurrence: GB)
  Receive Date: 20200703
  Receipt Date: 20200925
  Transmission Date: 20201103
  Serious: Yes (Other)
  Sender: FDA-Public Use
  Company Number: GB-IPSEN BIOPHARMACEUTICALS, INC.-2020-03989

PATIENT
  Age: 81 Year
  Sex: Male

DRUGS (1)
  1. SOMATULINE AUTOGEL [Suspect]
     Active Substance: LANREOTIDE ACETATE
     Indication: NEUROENDOCRINE TUMOUR
     Dosage: 120 MG/0.5 ML
     Route: 058

REACTIONS (13)
  - Blood pressure orthostatic decreased [Unknown]
  - Back pain [Unknown]
  - Syncope [Unknown]
  - Gait disturbance [Unknown]
  - Asthenia [Unknown]
  - Pain [Unknown]
  - Aggression [Unknown]
  - Off label use [Unknown]
  - Hypoaesthesia [Unknown]
  - Diarrhoea [Not Recovered/Not Resolved]
  - Fall [Unknown]
  - Arthralgia [Unknown]
  - Gastrointestinal motility disorder [Not Recovered/Not Resolved]

NARRATIVE: CASE EVENT DATE: 2020
